FAERS Safety Report 20993505 (Version 1)
Quarter: 2022Q2

REPORT INFORMATION
  Report Type: Spontaneous
  Country: US (occurrence: None)
  Receive Date: 20220621
  Receipt Date: 20220621
  Transmission Date: 20220721
  Serious: No
  Sender: FDA-Public Use
  Company Number: None

PATIENT
  Age: 54 Year
  Sex: Female

DRUGS (1)
  1. CLONIDINE TRANSDERMAL SYSTEM [Suspect]
     Active Substance: CLONIDINE

REACTIONS (4)
  - Product substitution issue [None]
  - Application site papules [None]
  - Application site pain [None]
  - Application site exfoliation [None]

NARRATIVE: CASE EVENT DATE: 20220224
